FAERS Safety Report 10483496 (Version 1)
Quarter: 2014Q3

REPORT INFORMATION
  Report Type: Spontaneous
  Country: US (occurrence: None)
  Receive Date: 20140929
  Receipt Date: 20140929
  Transmission Date: 20150326
  Serious: No
  Sender: FDA-Public Use
  Company Number: None

PATIENT
  Age: 20 Year
  Sex: Male
  Weight: 92.99 kg

DRUGS (1)
  1. MIRVASO [Suspect]
     Active Substance: BRIMONIDINE TARTRATE
     Indication: FLUSHING
     Dosage: 5 PEA SIZED AMOUNTS, ONCE DAILY, APPLIED TO A SURFACE, USUALLY THE SKIN
     Dates: start: 20140401, end: 20140924

REACTIONS (2)
  - Rebound effect [None]
  - Erythema [None]
